FAERS Safety Report 4449945-7 (Version None)
Quarter: 2004Q3

REPORT INFORMATION
  Report Type: 
  Country: None (occurrence: None)
  Receive Date: 20040915
  Receipt Date: 20040902
  Transmission Date: 20050211
  Serious: Yes (Disabling)
  Sender: FDA-Public Use
  Company Number: CH-GLAXOSMITHKLINE-B0344991A

PATIENT
  Age: 37 Year
  Sex: Female

DRUGS (6)
  1. ZIAGEN [Suspect]
     Indication: HIV INFECTION
     Dosage: 300MG TWICE PER DAY
     Route: 048
     Dates: start: 20030101
  2. REYATAZ [Suspect]
     Indication: HIV INFECTION
     Dosage: 150MG TWICE PER DAY
     Route: 048
     Dates: start: 20030101
  3. NORVIR [Suspect]
     Indication: HIV INFECTION
     Dosage: 100MG PER DAY
     Route: 048
     Dates: start: 20030101
  4. VIDEX [Suspect]
     Indication: HIV INFECTION
     Dosage: 400MG PER DAY
     Route: 048
     Dates: start: 20030101
  5. AMITRIPTYLINE HCL [Concomitant]
     Indication: DEPRESSION
     Dosage: 25MG SINGLE DOSE
     Route: 048
  6. ATROPINE [Concomitant]
     Dosage: .5MG UNKNOWN
     Route: 058

REACTIONS (1)
  - LIPODYSTROPHY ACQUIRED [None]
